FAERS Safety Report 8386797-7 (Version None)
Quarter: 2012Q2

REPORT INFORMATION
  Report Type: 
  Country: None (occurrence: None)
  Receive Date: 20120522
  Receipt Date: 20120522
  Transmission Date: 20120825
  Serious: No
  Sender: FDA-Public Use
  Company Number: None

PATIENT
  Age: 38 Year
  Sex: Female
  Weight: 63.5036 kg

DRUGS (1)
  1. CERTIRIZINE HCL [Suspect]
     Indication: MULTIPLE ALLERGIES
     Dosage: ONE PILL ONCE A DAY 1EVERYDAY PO : 1 TOOK ONE IN AM AND ONE IN PM EVERYDAY PO
     Route: 048
     Dates: start: 20120201, end: 20120507

REACTIONS (11)
  - IMPAIRED WORK ABILITY [None]
  - RASH [None]
  - DRY MOUTH [None]
  - MENTAL DISORDER [None]
  - MEMORY IMPAIRMENT [None]
  - DECREASED APPETITE [None]
  - DEPRESSION [None]
  - FEELING ABNORMAL [None]
  - PALPITATIONS [None]
  - SUICIDAL IDEATION [None]
  - WEIGHT DECREASED [None]
